FAERS Safety Report 14143157 (Version 1)
Quarter: 2017Q4

REPORT INFORMATION
  Report Type: Spontaneous
  Country: US (occurrence: US)
  Receive Date: 20171030
  Receipt Date: 20171030
  Transmission Date: 20180321
  Serious: No
  Sender: FDA-Public Use
  Company Number: US-TEVA-819304ACC

PATIENT
  Age: 20 Year
  Sex: Female
  Weight: 70.37 kg

DRUGS (2)
  1. PARAGARD T 380A [Suspect]
     Active Substance: COPPER
     Indication: CONTRACEPTION
     Dates: start: 20170711, end: 20171013
  2. TRAMADOL. [Concomitant]
     Active Substance: TRAMADOL

REACTIONS (4)
  - Urinary tract infection [Unknown]
  - Device expulsion [Recovered/Resolved]
  - Pollakiuria [Unknown]
  - Dysuria [Unknown]

NARRATIVE: CASE EVENT DATE: 20171013
